FAERS Safety Report 9155085 (Version 1)
Quarter: 2013Q1

REPORT INFORMATION
  Report Type: Spontaneous
  Country: IN (occurrence: None)
  Receive Date: 20130205
  Receipt Date: 20130205
  Transmission Date: 20140127
  Serious: Yes (Hospitalization, Other)
  Sender: FDA-Public Use
  Company Number: 2013P1001187

PATIENT
  Age: 52 Year
  Sex: Female

DRUGS (3)
  1. RIFAMPIN [Suspect]
     Indication: PULMONARY TUBERCULOSIS
  2. AMLODIPINE [Concomitant]
  3. UNSPECIFIED ANTI-TUBERCULOSIS MEDICATIONS [Concomitant]

REACTIONS (1)
  - Hypertension [None]
